FAERS Safety Report 9770653 (Version 1)
Quarter: 2013Q4

REPORT INFORMATION
  Report Type: Other
  Country: ES (occurrence: ES)
  Receive Date: 20131218
  Receipt Date: 20131218
  Transmission Date: 20140711
  Serious: Yes (Hospitalization)
  Sender: FDA-Public Use
  Company Number: ES-CUBIST PHARMACEUTICAL, INC.-2013CBST001316

PATIENT
  Sex: 0

DRUGS (1)
  1. CUBICIN [Suspect]
     Indication: ENDOCARDITIS
     Dosage: 500 MG, UNK
     Route: 042
     Dates: start: 20130909, end: 20130926

REACTIONS (1)
  - Pneumonitis [Recovered/Resolved]
